FAERS Safety Report 9674520 (Version 1)
Quarter: 2013Q4

REPORT INFORMATION
  Report Type: Spontaneous
  Country: GB (occurrence: GB)
  Receive Date: 20131107
  Receipt Date: 20131107
  Transmission Date: 20140711
  Serious: Yes (Life-Threatening, Disabling, Other)
  Sender: FDA-Public Use
  Company Number: GB-BRISTOL-MYERS SQUIBB COMPANY-19703578

PATIENT
  Sex: Female
  Weight: 86 kg

DRUGS (11)
  1. BYETTA [Suspect]
     Indication: DIABETES MELLITUS
     Route: 030
     Dates: start: 20120712, end: 20130826
  2. NOVOMIX [Concomitant]
     Dosage: INJECT IMMEDIATELY BEFORE MEALS,SUSPENSION FOR INJECTION
  3. OMEPRAZOLE [Concomitant]
     Dosage: GASTRO-RESISTANT CAPSULE
  4. PERINDOPRIL ERBUMINE [Concomitant]
     Dosage: TAB
  5. ASPIRIN [Concomitant]
     Dosage: DISPERSIBLE TABLET
  6. ATORVASTATIN [Concomitant]
     Dosage: AT NIGHT.TAB
  7. BENDROFLUMETHIAZIDE [Concomitant]
     Indication: HYPERTENSION
     Dosage: TAB
  8. BISOPROLOL FUMARATE [Concomitant]
     Dosage: TAB
  9. METFORMIN HCL [Concomitant]
     Dosage: TAKE TWO WITH BREAKFAST AND ONE WITH TEA.MODIFIED-RELEASE TABLET
  10. HYDROCORTISONE [Concomitant]
     Dosage: CREAM
  11. MICONAZOLE [Concomitant]
     Dosage: CREAM

REACTIONS (1)
  - Pancreatic carcinoma [Not Recovered/Not Resolved]
